FAERS Safety Report 6083120-8 (Version None)
Quarter: 2009Q1

REPORT INFORMATION
  Report Type: 
  Country: None (occurrence: None)
  Receive Date: 20090218
  Receipt Date: 20090218
  Transmission Date: 20090719
  Serious: Yes (Other)
  Sender: FDA-Public Use
  Company Number: None

PATIENT
  Age: 15 Year
  Sex: Female
  Weight: 58.0604 kg

DRUGS (1)
  1. DORYX [Suspect]
     Indication: ACNE
     Dosage: 150MG ONE A NIGHT PO ONE NIGHT
     Route: 048
     Dates: start: 20090202, end: 20090202

REACTIONS (3)
  - MEDICATION ERROR [None]
  - MIDDLE INSOMNIA [None]
  - OESOPHAGEAL ULCER [None]
